FAERS Safety Report 8220629-2 (Version None)
Quarter: 2012Q1

REPORT INFORMATION
  Report Type: 
  Country: None (occurrence: None)
  Receive Date: 20120320
  Receipt Date: 20120312
  Transmission Date: 20120608
  Serious: Yes (Hospitalization)
  Sender: FDA-Public Use
  Company Number: CN-ASTELLAS-2012US002709

PATIENT
  Age: 62 Year
  Sex: Female

DRUGS (1)
  1. ERLOTINIB HYDROCHLORIDE [Suspect]
     Indication: NON-SMALL CELL LUNG CANCER
     Dosage: 150 MG, UID/QD
     Route: 048
     Dates: start: 20120217, end: 20120223

REACTIONS (7)
  - VOMITING [None]
  - HEADACHE [None]
  - HAEMOPTYSIS [None]
  - NAUSEA [None]
  - RASH [None]
  - HYPERHIDROSIS [None]
  - MOUTH ULCERATION [None]
